FAERS Safety Report 9590001 (Version 1)
Quarter: 2013Q4

REPORT INFORMATION
  Report Type: Spontaneous
  Country: US (occurrence: US)
  Receive Date: 20131003
  Receipt Date: 20131003
  Transmission Date: 20140711
  Serious: No
  Sender: FDA-Public Use
  Company Number: US-AMGEN-USASP2012073628

PATIENT
  Age: 53 Year
  Sex: Male

DRUGS (12)
  1. ENBREL [Suspect]
     Indication: PRODUCT USED FOR UNKNOWN INDICATION
     Dosage: 50 MG, QWK
     Route: 058
  2. EFFIENT [Concomitant]
     Dosage: 10 MG, UNK
  3. METHOTREXATE [Concomitant]
     Dosage: 2.5 MG, UNK
  4. PREDNISONE [Concomitant]
     Dosage: 2.5 MG, UNK
  5. GABAPENTINE [Concomitant]
     Dosage: 100 MG, UNK
  6. LISINOPRIL [Concomitant]
     Dosage: 5 MG, UNK
  7. SIMVASTATIN [Concomitant]
     Dosage: 10 MG, UNK
  8. HYDROCHLOROTH [Concomitant]
     Dosage: 12.5 MG, UNK
  9. FAMOTIDINE [Concomitant]
     Dosage: 10 MG, UNK
  10. ASA [Concomitant]
     Dosage: 81 MG, UNK
  11. SULFASALAZIN [Concomitant]
     Dosage: 500 MG, UNK
  12. FOLIC ACID [Concomitant]
     Dosage: UNK

REACTIONS (1)
  - Dyspepsia [Unknown]
